FAERS Safety Report 17254162 (Version 4)
Quarter: 2020Q4

REPORT INFORMATION
  Report Type: Report from Study
  Country: DE (occurrence: DE)
  Receive Date: 20200109
  Receipt Date: 20201015
  Transmission Date: 20210113
  Serious: Yes (Life-Threatening, Hospitalization)
  Sender: FDA-Public Use
  Company Number: DE-PFIZER INC-2020001828

PATIENT
  Age: 49 Year
  Sex: Male
  Weight: 89 kg

DRUGS (23)
  1. METAMIZOL [Concomitant]
     Active Substance: METAMIZOLE SODIUM
     Indication: CHEST PAIN
     Dosage: UNK
     Dates: start: 20191224, end: 20191229
  2. STEROFUNDIN [Concomitant]
     Active Substance: CALCIUM CHLORIDE\MAGNESIUM CHLORIDE\POTASSIUM CHLORIDE\SODIUM ACETATE\SODIUM CHLORIDE
     Dosage: UNK
     Dates: start: 20191212, end: 20191218
  3. ACICLOVIR [Concomitant]
     Active Substance: ACYCLOVIR
     Dosage: UNK
     Dates: start: 20191213
  4. PARACETAMOL [Concomitant]
     Active Substance: ACETAMINOPHEN
     Dosage: UNK
     Dates: start: 20191227, end: 20191227
  5. VORICONAZOL [Concomitant]
     Active Substance: VORICONAZOLE
     Indication: PYREXIA
     Dosage: UNK
     Dates: start: 20191226, end: 20200510
  6. TAZOBAC [TAZOBACTAM] [Concomitant]
     Dosage: UNK
     Dates: start: 20191215, end: 20191225
  7. HYPROMELLOSE [Concomitant]
     Active Substance: HYPROMELLOSES
     Dosage: UNK
     Dates: start: 20191218, end: 20191230
  8. MOVICOL [Concomitant]
     Active Substance: POLYETHYLENE GLYCOL 3350\POTASSIUM CHLORIDE\SODIUM BICARBONATE\SODIUM CHLORIDE
     Dosage: UNK
     Dates: start: 20191225, end: 20191225
  9. DAUNORUBICIN HCL [Suspect]
     Active Substance: DAUNORUBICIN HYDROCHLORIDE
     Indication: ACUTE MYELOID LEUKAEMIA
     Dosage: 60 MG/M2, DAILY BY CONTINUOUS INFUSION
     Route: 041
     Dates: start: 20191219, end: 20191221
  10. INNOHEP [Concomitant]
     Active Substance: TINZAPARIN SODIUM
     Dosage: UNK
     Dates: start: 20191211, end: 20191224
  11. PANTOPRAZOL [PANTOPRAZOLE] [Concomitant]
     Active Substance: PANTOPRAZOLE
     Dosage: UNK
     Dates: start: 20191212, end: 20200102
  12. XYLOMETAZOLIN [Concomitant]
     Active Substance: XYLOMETAZOLINE HYDROCHLORIDE
     Dosage: UNK
     Dates: start: 20191218, end: 20191230
  13. LEVOFLOXACIN. [Concomitant]
     Active Substance: LEVOFLOXACIN
     Indication: INFECTION PROPHYLAXIS
     Dosage: UNK
     Dates: start: 20191216, end: 20191223
  14. HYDROXYCARBAMID [Concomitant]
     Active Substance: HYDROXYUREA
     Indication: HYPERURICAEMIA
     Dosage: UNK
     Dates: start: 20191212, end: 20191222
  15. FEBUXOSTAT. [Concomitant]
     Active Substance: FEBUXOSTAT
     Dosage: UNK
     Dates: start: 20191212, end: 20200117
  16. GLASDEGIB [Suspect]
     Active Substance: GLASDEGIB
     Indication: ACUTE MYELOID LEUKAEMIA
     Dosage: UNK UNK, ONCE DAILY CONTINUOUS
     Route: 048
     Dates: start: 20191219, end: 20191230
  17. METOCLOPRAMIDE. [Concomitant]
     Active Substance: METOCLOPRAMIDE
     Dosage: UNK
     Dates: start: 20191219, end: 20191226
  18. FUROSEMID [Concomitant]
     Active Substance: FUROSEMIDE
     Indication: OEDEMA
     Dosage: UNK
     Dates: start: 20191228, end: 20200107
  19. VANCOMYCIN [Concomitant]
     Active Substance: VANCOMYCIN
     Indication: FEBRILE INFECTION
     Dosage: UNK
     Dates: start: 20191225, end: 20191230
  20. POTASSIUM [Concomitant]
     Active Substance: POTASSIUM
     Dosage: UNK
     Dates: start: 20191229, end: 20191230
  21. CYTARABINE. [Suspect]
     Active Substance: CYTARABINE
     Indication: ACUTE MYELOID LEUKAEMIA
     Dosage: 100 MG/M2, DAILY BY CONTINUOUS INFUSION
     Route: 041
     Dates: start: 20191219, end: 20191225
  22. MERONEM [Concomitant]
     Active Substance: MEROPENEM
     Indication: FEBRILE INFECTION
     Dosage: UNK
     Dates: start: 20191225, end: 20200117
  23. AMPHOTERICIN B. [Concomitant]
     Active Substance: AMPHOTERICIN B
     Dosage: UNK
     Dates: start: 20191212, end: 20200204

REACTIONS (1)
  - Myocarditis [Recovered/Resolved with Sequelae]

NARRATIVE: CASE EVENT DATE: 20191230
